FAERS Safety Report 7636221-4 (Version None)
Quarter: 2011Q3

REPORT INFORMATION
  Report Type: 
  Country: None (occurrence: None)
  Receive Date: 20110726
  Receipt Date: 20110714
  Transmission Date: 20111222
  Serious: Yes (Other)
  Sender: FDA-Public Use
  Company Number: US-JNJFOC-20110707346

PATIENT
  Sex: Male
  Weight: 91.63 kg

DRUGS (5)
  1. KETOCONAZOLE [Suspect]
     Indication: PRODUCT USED FOR UNKNOWN INDICATION
     Route: 048
     Dates: start: 20101201, end: 20110401
  2. MICARDIS [Concomitant]
     Indication: HYPERTENSION
     Route: 048
  3. FORADIL [Concomitant]
     Indication: ASTHMA
     Route: 055
  4. ZYTIGA [Suspect]
     Indication: PROSTATE CANCER
     Route: 048
     Dates: start: 20110614
  5. SINGULAIR [Concomitant]
     Indication: ASTHMA
     Route: 048

REACTIONS (7)
  - EXTRASYSTOLES [None]
  - HEART RATE IRREGULAR [None]
  - COUGH [None]
  - BLOOD POTASSIUM DECREASED [None]
  - MUSCLE SPASMS [None]
  - HEART RATE DECREASED [None]
  - PROSTATIC SPECIFIC ANTIGEN INCREASED [None]
